FAERS Safety Report 4356027-1 (Version None)
Quarter: 2004Q2

REPORT INFORMATION
  Report Type: 
  Country: None (occurrence: None)
  Receive Date: 20040505
  Receipt Date: 20040429
  Transmission Date: 20050107
  Serious: Yes (Hospitalization)
  Sender: FDA-Public Use
  Company Number: 2004203022US

PATIENT
  Age: 61 Year
  Sex: Male
  Weight: 71.2 kg

DRUGS (7)
  1. CELEBREX [Suspect]
     Indication: RENAL CELL CARCINOMA STAGE UNSPECIFIED
     Dosage: 400 MG, BID, ORAL
     Route: 048
     Dates: start: 20040225, end: 20040305
  2. INTERFERON ALFA(INTERFERON ALFA) [Suspect]
     Indication: RENAL CELL CARCINOMA STAGE UNSPECIFIED
     Dosage: 3 MIU, QD, SUBCUTANEOUS
     Route: 058
     Dates: start: 20040225, end: 20040305
  3. MEGESTROL (MEGESTROL) [Concomitant]
  4. MIRTAZAPINE [Concomitant]
  5. SODIUM CHLORIDE INJ [Concomitant]
  6. TEMAZEPAM [Concomitant]
  7. MORPHINE [Concomitant]

REACTIONS (5)
  - ASTHENIA [None]
  - DEHYDRATION [None]
  - DIZZINESS POSTURAL [None]
  - NAUSEA [None]
  - VOMITING [None]
